FAERS Safety Report 23101203 (Version 4)
Quarter: 2023Q4

REPORT INFORMATION
  Report Type: Report from Study
  Country: ZA (occurrence: ZA)
  Receive Date: 20231024
  Receipt Date: 20231201
  Transmission Date: 20240110
  Serious: Yes (Other)
  Sender: FDA-Public Use
  Company Number: ZA-GILEAD-2023-0647950

PATIENT
  Age: 23 Year
  Sex: Female
  Weight: 56.8 kg

DRUGS (13)
  1. LENACAPAVIR [Suspect]
     Active Substance: LENACAPAVIR
     Indication: Prophylaxis against HIV infection
     Dosage: 463.5 MG, ONCE
     Route: 058
     Dates: start: 20230120, end: 20230120
  2. LENACAPAVIR [Suspect]
     Active Substance: LENACAPAVIR
     Dosage: 463.5 MG, ONCE
     Route: 058
     Dates: start: 20230721, end: 20230721
  3. PLACEBO [Suspect]
     Active Substance: UNSPECIFIED INGREDIENT
     Indication: Prophylaxis against HIV infection
     Dosage: 1 DOSAGE FORM (200/25), QD
     Route: 048
     Dates: start: 20230120
  4. PLACEBO [Suspect]
     Active Substance: UNSPECIFIED INGREDIENT
     Dosage: 600 UNK, ONCE
     Route: 048
     Dates: start: 20230120, end: 20230121
  5. PENICILLIN G BENZATHINE [Concomitant]
     Active Substance: PENICILLIN G BENZATHINE
     Indication: Syphilis
     Dosage: UNK
     Route: 030
     Dates: start: 20230218, end: 20230218
  6. PENICILLIN G BENZATHINE [Concomitant]
     Active Substance: PENICILLIN G BENZATHINE
     Dosage: UNK
     Route: 030
     Dates: start: 20230225, end: 20230225
  7. PENICILLIN G BENZATHINE [Concomitant]
     Active Substance: PENICILLIN G BENZATHINE
     Dosage: UNK
     Route: 030
     Dates: start: 20230304, end: 20230304
  8. CIPROFLOXACIN [Concomitant]
     Active Substance: CIPROFLOXACIN
     Indication: Urinary tract infection
     Dosage: UNK
     Route: 048
     Dates: start: 20230323, end: 20230329
  9. FERROUS SULFATE [Concomitant]
     Active Substance: FERROUS SULFATE
     Indication: Anaemia
     Dosage: UNK
     Route: 048
     Dates: start: 20230323
  10. FERROUS SULFATE [Concomitant]
     Active Substance: FERROUS SULFATE
     Indication: Iron deficiency anaemia
  11. FOLATE SODIUM [Concomitant]
     Active Substance: FOLATE SODIUM
     Indication: Anaemia
     Dosage: UNK
     Route: 048
     Dates: start: 20230323
  12. FOLATE SODIUM [Concomitant]
     Active Substance: FOLATE SODIUM
     Indication: Iron deficiency anaemia
  13. NORETHINDRONE ENANTHATE [Concomitant]
     Active Substance: NORETHINDRONE ENANTHATE
     Indication: Prophylaxis
     Dosage: UNK
     Route: 030
     Dates: start: 20230403, end: 20230403

REACTIONS (2)
  - Abortion spontaneous [Recovered/Resolved]
  - Maternal exposure during pregnancy [Recovered/Resolved]

NARRATIVE: CASE EVENT DATE: 20230711
